FAERS Safety Report 14925191 (Version 1)
Quarter: 2018Q2

REPORT INFORMATION
  Report Type: Spontaneous
  Country: CH (occurrence: CH)
  Receive Date: 20180522
  Receipt Date: 20180522
  Transmission Date: 20180711
  Serious: Yes (Other)
  Sender: FDA-Public Use
  Company Number: CH-PFIZER INC-2018204317

PATIENT
  Age: 56 Year
  Sex: Female

DRUGS (1)
  1. SERTRALIN PFIZER [Suspect]
     Active Substance: SERTRALINE HYDROCHLORIDE
     Dosage: 600 MG, DAILY

REACTIONS (5)
  - Rash [Unknown]
  - Optic nerve injury [Unknown]
  - Glaucoma [Unknown]
  - Mydriasis [Unknown]
  - Overdose [Unknown]
